FAERS Safety Report 18687735 (Version 1)
Quarter: 2020Q4

REPORT INFORMATION
  Report Type: Spontaneous
  Country: US (occurrence: US)
  Receive Date: 20201231
  Receipt Date: 20201231
  Transmission Date: 20210114
  Serious: No
  Sender: FDA-Public Use
  Company Number: US-ASTRAZENECA-2020SF70828

PATIENT
  Age: 61 Year
  Sex: Male
  Weight: 78.5 kg

DRUGS (1)
  1. BYDUREON BCISE [Suspect]
     Active Substance: EXENATIDE
     Indication: TYPE 2 DIABETES MELLITUS
     Route: 058
     Dates: start: 202010

REACTIONS (8)
  - Nausea [Not Recovered/Not Resolved]
  - Injection site pain [Unknown]
  - Abdominal distension [Unknown]
  - Retching [Unknown]
  - Vomiting [Unknown]
  - Gastrointestinal disorder [Unknown]
  - Feeling abnormal [Unknown]
  - Injection site mass [Not Recovered/Not Resolved]
